FAERS Safety Report 18057214 (Version 1)
Quarter: 2020Q3

REPORT INFORMATION
  Report Type: Other
  Country: FR (occurrence: FR)
  Receive Date: 20200723
  Receipt Date: 20200723
  Transmission Date: 20201103
  Serious: Yes (Other)
  Sender: FDA-Public Use
  Company Number: FR-CADILA HEALTHCARE LIMITED-FR-ZYDUS-053584

PATIENT

DRUGS (2)
  1. PRAVASTATIN. [Suspect]
     Active Substance: PRAVASTATIN
     Indication: CORONARY ARTERY DISEASE
     Dosage: 80 MILLIGRAM, QD
     Route: 048
     Dates: start: 20200609
  2. ATORVASTATIN [Suspect]
     Active Substance: ATORVASTATIN
     Indication: CORONARY ARTERY DISEASE
     Dosage: 80 MILLIGRAM, QD
     Route: 048
     Dates: start: 2018

REACTIONS (2)
  - Myalgia [Not Recovered/Not Resolved]
  - Headache [Not Recovered/Not Resolved]

NARRATIVE: CASE EVENT DATE: 2018
